FAERS Safety Report 11258453 (Version 1)
Quarter: 2015Q3

REPORT INFORMATION
  Report Type: Spontaneous
  Country: US (occurrence: US)
  Receive Date: 20150710
  Receipt Date: 20150710
  Transmission Date: 20151125
  Serious: No
  Sender: FDA-Public Use
  Company Number: US-TEVA-558264USA

PATIENT
  Sex: Male

DRUGS (1)
  1. OMEGA-3 ACIDS [Suspect]
     Active Substance: OMEGA-3 FATTY ACIDS

REACTIONS (3)
  - Abdominal discomfort [Unknown]
  - Product odour abnormal [Unknown]
  - Product physical issue [Unknown]
